FAERS Safety Report 9374051 (Version 5)
Quarter: 2014Q2

REPORT INFORMATION
  Report Type: Report from Study
  Country: BR (occurrence: BR)
  Receive Date: 20130628
  Receipt Date: 20140401
  Transmission Date: 20141212
  Serious: Yes (Hospitalization, Other)
  Sender: FDA-Public Use
  Company Number: BR-ROCHE-1242503

PATIENT
  Age: 68 Year
  Sex: Female
  Weight: 52 kg

DRUGS (15)
  1. ACTEMRA [Suspect]
     Indication: RHEUMATOID ARTHRITIS
     Dosage: MOST RECENT DOSE: 01/JUL/2013
     Route: 065
     Dates: start: 20120601, end: 20130701
  2. CITALOPRAM [Suspect]
     Indication: PRODUCT USED FOR UNKNOWN INDICATION
     Route: 065
  3. LOSARTAN POTASSIUM [Concomitant]
     Indication: HYPERTENSION
  4. HYDROCHLOROTHIAZIDE [Concomitant]
     Indication: HYPERTENSION
  5. ATENOLOL [Concomitant]
     Indication: HYPERTENSION
  6. SPIRONOLACTONE [Concomitant]
     Indication: HYPERTENSION
  7. PARACETAMOL [Concomitant]
     Indication: RHEUMATOID ARTHRITIS
     Dosage: TAKEN AS COMBINATION: PARACETAMOL, CODEIN, DEFLAZACORT, RANITIDINE
     Route: 065
  8. CODEIN [Concomitant]
     Indication: RHEUMATOID ARTHRITIS
     Dosage: TAKEN AS COMBINATION: PARACETAMOL, CODEIN, DEFLAZACORT, RANITIDINE
     Route: 065
  9. DEFLAZACORT [Concomitant]
     Indication: RHEUMATOID ARTHRITIS
     Dosage: TAKEN AS COMBINATION: PARACETAMOL, CODEIN, DEFLAZACORT, RANITIDINE
     Route: 065
  10. RANITIDINE [Concomitant]
     Indication: RHEUMATOID ARTHRITIS
     Dosage: TAKEN AS COMBINATION: PARACETAMOL, CODEIN, DEFLAZACORT, RANITIDINE
     Route: 065
  11. LEXAPRO [Concomitant]
     Indication: CEREBROVASCULAR ACCIDENT
     Dosage: TAKEN AS COMBINATION: GINKGO BILOBA AND BUSPIRONE
     Route: 065
  12. GINKGO [Concomitant]
  13. BUSPIRONE [Concomitant]
  14. SIMVASTATIN [Concomitant]
  15. AMITRIPTYLINE [Concomitant]

REACTIONS (9)
  - Cerebrovascular accident [Recovered/Resolved]
  - Blood pressure increased [Recovered/Resolved]
  - Clavicle fracture [Recovering/Resolving]
  - Depression [Recovered/Resolved]
  - Upper limb fracture [Unknown]
  - Body height decreased [Unknown]
  - Pain [Not Recovered/Not Resolved]
  - Gait disturbance [Not Recovered/Not Resolved]
  - Arthralgia [Unknown]
